FAERS Safety Report 17782296 (Version 1)
Quarter: 2020Q2

REPORT INFORMATION
  Report Type: Spontaneous
  Country: US (occurrence: US)
  Receive Date: 20200514
  Receipt Date: 20200514
  Transmission Date: 20200714
  Serious: Yes (Other)
  Sender: FDA-Public Use
  Company Number: US-BAUSCH-BL-2020-013650

PATIENT
  Sex: Female

DRUGS (2)
  1. LACRISERT [Suspect]
     Active Substance: HYDROXYPROPYL CELLULOSE
     Dosage: THE PATIENT HAD BEEN CUTTING THE LACRISERT AND USING THEM EVERY 3 DAYS TO STRETCH OUT THE SUPPLY
     Route: 047
     Dates: start: 2020, end: 2020
  2. LACRISERT [Suspect]
     Active Substance: HYDROXYPROPYL CELLULOSE
     Indication: DRY EYE
     Route: 047

REACTIONS (9)
  - Fear [Unknown]
  - Product availability issue [Unknown]
  - Intentional product use issue [Unknown]
  - Wrong technique in product usage process [Unknown]
  - Blindness [Unknown]
  - Dry eye [Unknown]
  - Impaired work ability [Unknown]
  - Eye infection [Unknown]
  - Therapy interrupted [Unknown]

NARRATIVE: CASE EVENT DATE: 2020
